FAERS Safety Report 7157479-4 (Version None)
Quarter: 2010Q4

REPORT INFORMATION
  Report Type: 
  Country: None (occurrence: None)
  Receive Date: 20101214
  Receipt Date: 20101207
  Transmission Date: 20110411
  Serious: Yes (Other)
  Sender: FDA-Public Use
  Company Number: B0688981A

PATIENT
  Sex: Male
  Weight: 78 kg

DRUGS (6)
  1. RITMONORM [Suspect]
     Indication: ARRHYTHMIA
     Dosage: 300MG TWICE PER DAY
     Route: 065
     Dates: start: 20101206, end: 20101207
  2. ATENOLOL [Concomitant]
     Dosage: 50MG PER DAY
     Route: 048
  3. ACETYLSALICYLIC ACID [Concomitant]
     Indication: ANTICOAGULANT THERAPY
     Dosage: 100MG TWICE PER DAY
     Route: 048
  4. CAPTOPRIL [Concomitant]
     Indication: HYPERTENSION
     Dosage: 225MG PER DAY
     Route: 048
  5. CLONAZEPAM [Concomitant]
     Indication: ANXIETY
     Dosage: 25MG TWICE PER DAY
     Route: 048
  6. PROMETHAZINE [Concomitant]
     Route: 030

REACTIONS (7)
  - ARRHYTHMIA [None]
  - CONFUSIONAL STATE [None]
  - DERMATITIS ALLERGIC [None]
  - DRUG INEFFECTIVE [None]
  - HALLUCINATION [None]
  - PRURITUS [None]
  - SKIN BURNING SENSATION [None]
